FAERS Safety Report 24425964 (Version 1)
Quarter: 2024Q4

REPORT INFORMATION
  Report Type: Spontaneous
  Country: US (occurrence: US)
  Receive Date: 20241011
  Receipt Date: 20241011
  Transmission Date: 20250115
  Serious: No
  Sender: GLAXOSMITHKLINE
  Company Number: US-GSK-US2024122035

PATIENT
  Age: 49 Year
  Sex: Female

DRUGS (2)
  1. ARNUITY ELLIPTA [Suspect]
     Active Substance: FLUTICASONE FUROATE
     Indication: Lung disorder
     Dosage: 200 MG, QD
     Dates: start: 20241003
  2. KEPPRA [Concomitant]
     Active Substance: LEVETIRACETAM
     Indication: Multiple sclerosis
     Dosage: UNK

REACTIONS (1)
  - Dyspnoea [Not Recovered/Not Resolved]
